FAERS Safety Report 15098124 (Version 2)
Quarter: 2018Q3

REPORT INFORMATION
  Report Type: Spontaneous
  Country: US (occurrence: US)
  Receive Date: 20180702
  Receipt Date: 20180920
  Transmission Date: 20181010
  Serious: No
  Sender: FDA-Public Use
  Company Number: US-IGSA-SR10005489

PATIENT
  Age: 13 Month
  Sex: Female
  Weight: 10 kg

DRUGS (2)
  1. GAMUNEX?C [Suspect]
     Active Substance: HUMAN IMMUNOGLOBULIN G
     Indication: SECONDARY IMMUNODEFICIENCY
     Dosage: 10 G, UNKNOWN
     Route: 042
     Dates: start: 20171101, end: 20171101
  2. RED BLOOD CELLS [Concomitant]
     Active Substance: HUMAN RED BLOOD CELL
     Dosage: 100 ML, SINGLE

REACTIONS (3)
  - Laboratory test abnormal [None]
  - Anti-actin antibody [Not Recovered/Not Resolved]
  - Anti-epithelial antibody [Not Recovered/Not Resolved]

NARRATIVE: CASE EVENT DATE: 20171102
